FAERS Safety Report 7050017-6 (Version None)
Quarter: 2010Q4

REPORT INFORMATION
  Report Type: 
  Country: None (occurrence: None)
  Receive Date: 20101018
  Receipt Date: 20101014
  Transmission Date: 20110411
  Serious: Yes (Hospitalization)
  Sender: FDA-Public Use
  Company Number: US-BAYER-200821689NA

PATIENT
  Age: 61 Year
  Sex: Female
  Weight: 49 kg

DRUGS (34)
  1. SORAFENIB [Suspect]
     Indication: BREAST CANCER METASTATIC
     Dosage: TOTAL DAILY DOSE: 800 MG  UNIT DOSE: 200 MG
     Route: 048
     Dates: start: 20080417, end: 20080612
  2. SORAFENIB [Suspect]
     Dosage: TOTAL DAILY DOSE: 800 MG  UNIT DOSE: 200 MG
     Route: 048
     Dates: start: 20080919, end: 20081112
  3. SORAFENIB [Suspect]
     Dosage: TOTAL DAILY DOSE: 200 MG  UNIT DOSE: 200 MG
     Route: 048
     Dates: start: 20080619, end: 20080710
  4. SORAFENIB [Suspect]
     Dosage: TOTAL DAILY DOSE: 400 MG  UNIT DOSE: 200 MG
     Route: 048
     Dates: start: 20080710, end: 20080904
  5. TAXOL [Suspect]
     Indication: BREAST CANCER METASTATIC
     Dosage: AS USED: 90 MG/M2
     Route: 042
     Dates: start: 20080919, end: 20081106
  6. TAXOL [Suspect]
     Dosage: AS USED: 65 MG/M2
     Route: 042
     Dates: start: 20080501
  7. TAXOL [Suspect]
     Dosage: AS USED: 90 MG/M2
     Route: 042
     Dates: start: 20080417, end: 20080424
  8. SORAFENIB OR PLACEBO - STUDY MEDICATION NOT GIVEN [Suspect]
     Indication: BREAST CANCER METASTATIC
  9. TAXOL [Suspect]
     Indication: BREAST CANCER METASTATIC
  10. MULTI-VITAMIN [Concomitant]
     Route: 048
     Dates: start: 20080324
  11. DECADRON [Concomitant]
     Indication: PROPHYLAXIS OF NAUSEA AND VOMITING
     Dosage: AS USED: 20 MG
     Route: 042
     Dates: start: 20080417, end: 20080417
  12. DECADRON [Concomitant]
     Dosage: AS USED: 16 MG
     Route: 048
     Dates: start: 20080416, end: 20080416
  13. ANZEMET [Concomitant]
     Indication: PROPHYLAXIS OF NAUSEA AND VOMITING
     Route: 042
     Dates: start: 20080417, end: 20080417
  14. TAGAMET [Concomitant]
     Indication: PROPHYLAXIS OF NAUSEA AND VOMITING
     Route: 042
     Dates: start: 20080417, end: 20080417
  15. BENADRYL [Concomitant]
     Indication: PROPHYLAXIS OF NAUSEA AND VOMITING
     Route: 042
     Dates: start: 20080417, end: 20080417
  16. ZOFRAN [Concomitant]
     Indication: PROPHYLAXIS OF NAUSEA AND VOMITING
     Route: 042
     Dates: start: 20080417, end: 20080417
  17. ZOFRAN [Concomitant]
     Route: 042
     Dates: start: 20081112
  18. ZOFRAN [Concomitant]
     Route: 048
     Dates: start: 20080505, end: 20080505
  19. ZOMETA [Concomitant]
     Indication: SKELETAL INJURY
     Dosage: Q 3-4 WEEKS
     Route: 042
     Dates: start: 20080417
  20. COMPAZINE [Concomitant]
     Indication: NAUSEA
     Route: 048
     Dates: start: 20080417
  21. TUMS [Concomitant]
     Indication: HYPOCALCAEMIA
     Dosage: 3 DOSAGE FORM
     Route: 048
     Dates: start: 20080508
  22. VICODIN [Concomitant]
     Indication: ABDOMINAL PAIN
     Dosage: 5 MG,5/500 MG PRN
     Route: 048
     Dates: start: 20080605
  23. PROCRIT [Concomitant]
     Indication: ANAEMIA
     Dosage: 20000 IU,20,000-40,000 U PRN
     Dates: start: 20080619
  24. PHENERGAN [Concomitant]
     Indication: NAUSEA
     Route: 048
     Dates: start: 20080808
  25. PHENERGAN [Concomitant]
     Dosage: PRE AND POST SURGERY
     Route: 048
     Dates: start: 20080908
  26. PHENERGAN [Concomitant]
     Dosage: AS REQUIRED
     Route: 048
     Dates: start: 20080807
  27. MIDAZOLAM [Concomitant]
     Indication: ABSCESS DRAINAGE
     Dosage: AS USED: 4 MG/ML
     Route: 042
     Dates: start: 20080904
  28. MIDAZOLAM [Concomitant]
     Dates: start: 20080808, end: 20080808
  29. FUROSEMIDE [Concomitant]
     Indication: TRANSFUSION
     Dosage: AS USED: 20 MG
     Dates: start: 20080809, end: 20080809
  30. ZOLPIDEM [Concomitant]
     Indication: INSOMNIA
     Route: 048
     Dates: start: 20080810
  31. POTASSIUM CHLORIDE [Concomitant]
     Indication: HYPOKALAEMIA
     Dosage: AS USED: 10 MEQ
     Route: 048
     Dates: start: 20080810
  32. MIRALAX [Concomitant]
     Indication: CONSTIPATION
     Dosage: 1 DOSAGE FORM AS REQUIRED
     Route: 048
     Dates: start: 20080811
  33. MORPHINE [Concomitant]
     Dosage: PRE AND POST SURGERY
     Dates: start: 20080808, end: 20080809
  34. CALCIUM WITH VITAMIN D [Concomitant]
     Indication: VITAMIN SUPPLEMENTATION
     Route: 048
     Dates: start: 20080818

REACTIONS (4)
  - ABDOMINAL ABSCESS [None]
  - NEPHROLITHIASIS [None]
  - PERINEPHRIC ABSCESS [None]
  - RENAL IMPAIRMENT [None]
